FAERS Safety Report 7913211-5 (Version None)
Quarter: 2011Q4

REPORT INFORMATION
  Report Type: 
  Country: None (occurrence: None)
  Receive Date: 20111114
  Receipt Date: 20111011
  Transmission Date: 20120403
  Serious: Yes (Hospitalization, Other)
  Sender: FDA-Public Use
  Company Number: US-ELI_LILLY_AND_COMPANY-US201108008527

PATIENT
  Age: 46 Year
  Sex: Male

DRUGS (9)
  1. CYMBALTA [Suspect]
     Indication: DEPRESSION
     Dosage: 30 MG, UNK
     Dates: end: 20110401
  2. HUMALOG [Suspect]
  3. LANTUS [Concomitant]
  4. HUMALOG [Suspect]
  5. BENAZEPRIL HYDROCHLORIDE [Concomitant]
  6. PROTEASE INHIBITORS [Concomitant]
  7. OMEPRAZOLE [Concomitant]
  8. AMLODIPINE [Concomitant]
  9. TRAZODONE HCL [Concomitant]

REACTIONS (8)
  - RENAL FAILURE [None]
  - DIALYSIS [None]
  - HEPATIC FAILURE [None]
  - DRUG ABUSE [None]
  - PAIN [None]
  - MEMORY IMPAIRMENT [None]
  - RHABDOMYOLYSIS [None]
  - HIV TEST POSITIVE [None]
